FAERS Safety Report 10804056 (Version 1)
Quarter: 2015Q1

REPORT INFORMATION
  Report Type: Spontaneous
  Country: FR (occurrence: FR)
  Receive Date: 20150217
  Receipt Date: 20150217
  Transmission Date: 20150721
  Serious: Yes (Other)
  Sender: FDA-Public Use
  Company Number: FR-SA-2014SA169438

PATIENT
  Age: 82 Year
  Sex: Male
  Weight: 58 kg

DRUGS (6)
  1. PREVISCAN [Concomitant]
     Active Substance: FLUINDIONE
     Indication: PULMONARY EMBOLISM
     Route: 048
     Dates: start: 201310
  2. TRIATEC [Concomitant]
     Active Substance: RAMIPRIL
     Indication: CARDIAC FAILURE
     Dosage: 2.5 MG
     Route: 048
     Dates: start: 201311
  3. FUROSEMIDE. [Suspect]
     Active Substance: FUROSEMIDE
     Indication: CARDIAC FAILURE
     Dosage: DOSE: THREE FOURTH DOSAGE FORM (HALF MORNING AND ONE FOURTH NOON)
     Route: 048
     Dates: start: 201311
  4. DIFFU K [Concomitant]
     Active Substance: POTASSIUM CHLORIDE
     Dosage: 600
     Route: 048
     Dates: start: 201311
  5. DITROPAN [Suspect]
     Active Substance: OXYBUTYNIN CHLORIDE
     Indication: POLLAKIURIA
     Route: 048
     Dates: start: 1991
  6. ANDROTARDYL [Concomitant]
     Active Substance: TESTOSTERONE
     Indication: BLOOD TESTOSTERONE
     Route: 048
     Dates: start: 1991

REACTIONS (6)
  - Aptyalism [Not Recovered/Not Resolved]
  - Gastrointestinal disorder [Unknown]
  - Urine output increased [Unknown]
  - Dry mouth [Not Recovered/Not Resolved]
  - Vertigo [Unknown]
  - Hypotension [Unknown]

NARRATIVE: CASE EVENT DATE: 201311
